FAERS Safety Report 14993117 (Version 1)
Quarter: 2018Q2

REPORT INFORMATION
  Report Type: Spontaneous
  Country: US (occurrence: US)
  Receive Date: 20180517
  Receipt Date: 20180517
  Transmission Date: 20180711
  Serious: Yes (Other)
  Sender: FDA-Public Use
  Company Number: None

PATIENT
  Age: 65 Year
  Sex: Female
  Weight: 77.02 kg

DRUGS (12)
  1. SPIRIVA [Concomitant]
     Active Substance: TIOTROPIUM BROMIDE MONOHYDRATE
  2. ACCOLATE [Concomitant]
     Active Substance: ZAFIRLUKAST
  3. ALBUTEROL. [Concomitant]
     Active Substance: ALBUTEROL
  4. ALECENSA [Suspect]
     Active Substance: ALECTINIB HYDROCHLORIDE
     Indication: LUNG NEOPLASM MALIGNANT
     Dosage: ?          QUANTITY:2 DF DOSAGE FORM;?
     Route: 048
     Dates: start: 20180201, end: 20180426
  5. TYLENOL [Concomitant]
     Active Substance: ACETAMINOPHEN
  6. LORAZEPAM. [Concomitant]
     Active Substance: LORAZEPAM
  7. ONDANSETRON [Concomitant]
     Active Substance: ONDANSETRON
  8. LEVOTHYROXINE. [Concomitant]
     Active Substance: LEVOTHYROXINE
  9. ROBITUSSIN DM [Concomitant]
     Active Substance: DEXTROMETHORPHAN HYDROBROMIDE\GUAIFENESIN
  10. VISTARIL [Concomitant]
     Active Substance: HYDROXYZINE PAMOATE
  11. XALKORI [Concomitant]
     Active Substance: CRIZOTINIB
  12. LISINOPRIL. [Concomitant]
     Active Substance: LISINOPRIL

REACTIONS (4)
  - Rash macular [None]
  - Skin exfoliation [None]
  - Skin disorder [None]
  - Pruritus [None]

NARRATIVE: CASE EVENT DATE: 20180326
